FAERS Safety Report 6280255-1 (Version None)
Quarter: 2009Q3

REPORT INFORMATION
  Report Type: 
  Country: None (occurrence: None)
  Receive Date: 20090723
  Receipt Date: 20070709
  Transmission Date: 20100115
  Serious: Yes (Other)
  Sender: FDA-Public Use
  Company Number: US-ASTRAZENECA-2007UW02026

PATIENT
  Age: 14832 Day
  Sex: Female
  Weight: 87.1 kg

DRUGS (13)
  1. SEROQUEL [Suspect]
     Indication: ANXIETY
     Dosage: 25MG TO 200MG
     Route: 048
     Dates: start: 20010114, end: 20050705
  2. SEROQUEL [Suspect]
     Indication: AGITATION
     Dosage: 25MG TO 200MG
     Route: 048
     Dates: start: 20010114, end: 20050705
  3. SEROQUEL [Suspect]
     Route: 048
     Dates: start: 20020101, end: 20050601
  4. SEROQUEL [Suspect]
     Route: 048
     Dates: start: 20020101, end: 20050601
  5. AKG [Concomitant]
     Indication: WEIGHT INCREASED
  6. PROZAC [Concomitant]
     Indication: DEPRESSION
     Dosage: 10MG TO 80MG
     Route: 048
     Dates: start: 19951213
  7. TRAZODONE [Concomitant]
     Indication: INSOMNIA
     Dosage: 50MG TO 100MG
     Dates: start: 20010113
  8. KLONOPINE/CLONAZEPAM [Concomitant]
     Indication: ANXIETY
     Dosage: 0.5MG TO 2MG
     Route: 048
     Dates: start: 19951218
  9. KLONOPINE/CLONAZEPAM [Concomitant]
     Indication: DEPRESSION
     Dosage: 0.5MG TO 2MG
     Route: 048
     Dates: start: 19951218
  10. RISPERDAL [Concomitant]
     Dosage: 1MG TO 3MG TITRATED DOSE
     Dates: start: 20010114, end: 20061205
  11. DEXEDRINE [Concomitant]
     Indication: ATTENTION DEFICIT/HYPERACTIVITY DISORDER
     Dosage: 5MG TO 20MG
     Route: 048
     Dates: start: 19980723
  12. DEPAKOTE [Concomitant]
     Dosage: 500MG TO 1000MG
     Route: 048
     Dates: start: 20010116
  13. NEURONTIN [Concomitant]
     Indication: HYPOMANIA
     Route: 048
     Dates: start: 20001201

REACTIONS (4)
  - DIABETES MELLITUS INADEQUATE CONTROL [None]
  - DIABETIC GASTROPARESIS [None]
  - OVERDOSE [None]
  - TYPE 1 DIABETES MELLITUS [None]
